FAERS Safety Report 5974187-3 (Version None)
Quarter: 2008Q4

REPORT INFORMATION
  Report Type: 
  Country: None (occurrence: None)
  Receive Date: 20081125
  Receipt Date: 20081111
  Transmission Date: 20090506
  Serious: Yes (Hospitalization)
  Sender: FDA-Public Use
  Company Number: FABR-1000516

PATIENT
  Age: 62 Year
  Sex: Male
  Weight: 82 kg

DRUGS (11)
  1. FABRAZYME [Suspect]
     Indication: FABRY'S DISEASE
     Dosage: 87.5 MG Q2W INTRAVENOUS
     Route: 042
     Dates: start: 20010809, end: 20081029
  2. CYCLOSPORINE [Concomitant]
  3. CELLCEPT (MYCOPHANOLATE MOFETIL) [Concomitant]
  4. PREDNISONE [Concomitant]
  5. TORSEMIDE [Concomitant]
  6. CINACALCET (CINACALCET) [Concomitant]
  7. ESOMEPRAZOLE MAGNESIUM [Concomitant]
  8. AMLODIPIN (AMLODIPINE MALEATE) [Concomitant]
  9. DARBEPOETIN ALFA (DARBEPOETIN ALFA) [Concomitant]
  10. EZETIMIBE [Concomitant]
  11. CANDESARTAN CILEXETIL [Concomitant]

REACTIONS (1)
  - ATRIOVENTRICULAR BLOCK COMPLETE [None]
